FAERS Safety Report 6070751-4 (Version None)
Quarter: 2009Q1

REPORT INFORMATION
  Report Type: 
  Country: None (occurrence: None)
  Receive Date: 20090209
  Receipt Date: 20090204
  Transmission Date: 20090719
  Serious: Yes (Life-Threatening, Hospitalization)
  Sender: FDA-Public Use
  Company Number: US-SANOFI-SYNTHELABO-F01200900101

PATIENT
  Sex: Male
  Weight: 93 kg

DRUGS (19)
  1. AMBIEN [Concomitant]
     Route: 048
  2. BACTRIM [Concomitant]
     Dosage: EVERY MONDAY, WEDNESDAY, FRIDAY
     Route: 048
  3. TAMSULOSIN HCL [Concomitant]
     Route: 048
  4. RITUXIMAB [Concomitant]
     Indication: EPSTEIN-BARR VIRUS INFECTION
     Route: 041
  5. POTASSIUM CHLORIDE [Concomitant]
     Route: 041
  6. POSACONAZOLE [Concomitant]
     Route: 048
  7. METOPROLOL TARTRATE [Concomitant]
     Route: 048
  8. HYDROCORTISONE [Concomitant]
  9. GANCICLOVIR [Concomitant]
     Route: 041
  10. FINASTERIDE [Concomitant]
     Route: 048
  11. DOXYCYCLINE [Concomitant]
     Route: 048
  12. CASPOFUNGIN [Concomitant]
     Route: 041
  13. ALPRAZOLAM [Concomitant]
     Dosage: 0.25 MG Q8H, PRN
     Route: 048
  14. ACETAMINOPHEN [Concomitant]
     Dosage: 600 MG Q4H, PRN
     Route: 048
  15. PEGFILGRASTIM [Concomitant]
     Route: 058
     Dates: start: 20081001, end: 20081206
  16. RITUXIMAB [Suspect]
     Dosage: DAY 1, EVERY 4-6 WEEKS
     Route: 041
     Dates: start: 20081202, end: 20081202
  17. CYTARABINE [Suspect]
     Dosage: DAYS 2-4, EVERY 4-6 WEEKS
     Route: 041
     Dates: start: 20081203, end: 20081205
  18. FLUDARABINE PHOSPHATE [Suspect]
     Dosage: DAYS 2-4, EVERY 4-6 WEEKS
     Route: 041
     Dates: start: 20081203, end: 20081205
  19. OXALIPLATIN [Suspect]
     Indication: CHRONIC LYMPHOCYTIC LEUKAEMIA
     Dosage: ON DAYS 1-4, EVERY 4-6 WEEKS
     Route: 041
     Dates: start: 20081202, end: 20081205

REACTIONS (1)
  - MULTIPLE MYELOMA [None]
